FAERS Safety Report 10434491 (Version 4)
Quarter: 2014Q4

REPORT INFORMATION
  Report Type: Report from Study
  Country: US (occurrence: US)
  Receive Date: 20140905
  Receipt Date: 20141028
  Transmission Date: 20150528
  Serious: Yes (Hospitalization, Other)
  Sender: FDA-Public Use
  Company Number: US-TEVA-506577USA

PATIENT
  Age: 10 Month
  Sex: Female
  Weight: 8.4 kg

DRUGS (6)
  1. FOLINIC ACID [Suspect]
     Active Substance: LEUCOVORIN
     Dosage: LAST ADMINISTERED DATE 23-AUG-2014
     Dates: start: 20140428
  2. LESTAURTINIB [Suspect]
     Active Substance: LESTAURTINIB
     Indication: ACUTE LYMPHOCYTIC LEUKAEMIA
  3. METHOTREXATE [Suspect]
     Active Substance: METHOTREXATE
     Indication: ACUTE LYMPHOCYTIC LEUKAEMIA
     Dosage: LAST ADMINISTERED DATE 20-AUG-2014
     Route: 042
     Dates: start: 20140428
  4. METHOTREXATE [Suspect]
     Active Substance: METHOTREXATE
     Dosage: LAST ADMINISTERED DATE 20-AUG-2014
     Route: 037
     Dates: start: 20140428
  5. CYTARABINE. [Suspect]
     Active Substance: CYTARABINE
     Indication: ACUTE LYMPHOCYTIC LEUKAEMIA
     Dosage: LAST ADMINSTERED DATE 19-AUG-2014
     Route: 037
     Dates: start: 20140428
  6. HYDROCORTISONE. [Suspect]
     Active Substance: HYDROCORTISONE
     Indication: ACUTE LYMPHOCYTIC LEUKAEMIA
     Dosage: LAST ADMINISTERED DATE 19-AUG-2014
     Route: 037
     Dates: start: 20140428

REACTIONS (5)
  - Diarrhoea [Not Recovered/Not Resolved]
  - Dehydration [Not Recovered/Not Resolved]
  - Hypoalbuminaemia [Not Recovered/Not Resolved]
  - Hypoglycaemia [Recovered/Resolved]
  - Stomatitis [Not Recovered/Not Resolved]

NARRATIVE: CASE EVENT DATE: 20140826
